FAERS Safety Report 5316401-3 (Version None)
Quarter: 2007Q2

REPORT INFORMATION
  Report Type: 
  Country: None (occurrence: None)
  Receive Date: 20070504
  Receipt Date: 20070427
  Transmission Date: 20071010
  Serious: Yes (Other)
  Sender: FDA-Public Use
  Company Number: DE-RB-006097-07

PATIENT
  Age: 84 Year
  Sex: Female

DRUGS (1)
  1. TEMGESIC [Suspect]
     Indication: OSTEOPOROSIS
     Route: 048

REACTIONS (3)
  - DIZZINESS [None]
  - HYPERTENSIVE CRISIS [None]
  - VOMITING [None]
